FAERS Safety Report 7935650-9 (Version None)
Quarter: 2011Q4

REPORT INFORMATION
  Report Type: 
  Country: None (occurrence: None)
  Receive Date: 20111123
  Receipt Date: 20111114
  Transmission Date: 20120403
  Serious: Yes (Other)
  Sender: FDA-Public Use
  Company Number: US-ELI_LILLY_AND_COMPANY-US201103007464

PATIENT
  Sex: Female

DRUGS (4)
  1. HUMULIN N [Suspect]
     Indication: DIABETES MELLITUS
     Dosage: 26 U, EACH MORNING
     Dates: start: 20050101
  2. HUMULIN N [Suspect]
     Dosage: 26 U, EACH MORNING
     Dates: start: 20050101
  3. HUMULIN R [Suspect]
     Dosage: 6 U, EACH MORNING
     Dates: start: 20050101
  4. HUMULIN R [Suspect]
     Indication: DIABETES MELLITUS
     Dosage: 6 U, EACH MORNING
     Dates: start: 20050101

REACTIONS (8)
  - WRIST FRACTURE [None]
  - FALL [None]
  - TOOTH AVULSION [None]
  - NERVE INJURY [None]
  - LOSS OF CONSCIOUSNESS [None]
  - BLOOD GLUCOSE DECREASED [None]
  - BLOOD GLUCOSE INCREASED [None]
  - WRONG TECHNIQUE IN DRUG USAGE PROCESS [None]
